FAERS Safety Report 6489649-2 (Version None)
Quarter: 2009Q4

REPORT INFORMATION
  Report Type: 
  Country: None (occurrence: None)
  Receive Date: 20091210
  Receipt Date: 20091204
  Transmission Date: 20100525
  Serious: Yes (Hospitalization)
  Sender: FDA-Public Use
  Company Number: US-GILEAD-2009-0025483

PATIENT
  Sex: Female

DRUGS (20)
  1. LETAIRIS [Suspect]
     Indication: PULMONARY ARTERIAL HYPERTENSION
     Route: 048
     Dates: start: 20071103
  2. REVATIO [Concomitant]
  3. VENTAVIS [Concomitant]
  4. COUMADIN [Concomitant]
  5. COZAAR [Concomitant]
  6. ALDACTONE [Concomitant]
  7. LASIX [Concomitant]
  8. SINGULAIR [Concomitant]
  9. PREDNISONE [Concomitant]
  10. SYMBICORT [Concomitant]
  11. SPIRIVA [Concomitant]
  12. XOPENEX HFA [Concomitant]
  13. ASMANEX TWISTHALER [Concomitant]
  14. ELAVIL [Concomitant]
  15. NEURONTIN [Concomitant]
  16. FOSAMAX [Concomitant]
  17. TYLENOL (CAPLET) [Concomitant]
  18. NEXIUM [Concomitant]
  19. ALLEGRA [Concomitant]
  20. IRON [Concomitant]

REACTIONS (2)
  - INFLUENZA [None]
  - PNEUMONIA [None]
